FAERS Safety Report 8826707 (Version 2)
Quarter: 2013Q2

REPORT INFORMATION
  Report Type: Report from Study
  Country: GB (occurrence: GB)
  Receive Date: 20121005
  Receipt Date: 20130410
  Transmission Date: 20140414
  Serious: Yes (Congenital Anomaly)
  Sender: FDA-Public Use
  Company Number: PHHY2012GB086815

PATIENT
  Sex: 0

DRUGS (5)
  1. TEGRETOL [Suspect]
     Indication: EPILEPSY
     Dosage: 800 MG, DAILY
     Route: 064
  2. GABAPENTIN [Suspect]
     Indication: EPILEPSY
     Route: 064
  3. GABAPENTIN [Suspect]
     Route: 064
  4. LEVETIRACETAM [Suspect]
     Indication: EPILEPSY
     Route: 064
  5. LEVETIRACETAM [Suspect]
     Indication: EPILEPSY
     Route: 064

REACTIONS (2)
  - Talipes [Unknown]
  - Foetal exposure during pregnancy [Unknown]
